FAERS Safety Report 8287295-1 (Version None)
Quarter: 2012Q2

REPORT INFORMATION
  Report Type: 
  Country: None (occurrence: None)
  Receive Date: 20120416
  Receipt Date: 20120416
  Transmission Date: 20120825
  Serious: Yes (Hospitalization, Other)
  Sender: FDA-Public Use
  Company Number: None

PATIENT
  Age: 75 Year
  Sex: Female
  Weight: 77.11 kg

DRUGS (2)
  1. PRADAXA [Suspect]
     Indication: ATRIAL FLUTTER
     Dosage: 75MG
     Route: 048
     Dates: start: 20111001, end: 20120310
  2. PRADAXA [Suspect]
     Indication: ATRIAL FIBRILLATION
     Dosage: 75MG
     Route: 048
     Dates: start: 20111001, end: 20120310

REACTIONS (4)
  - GASTROINTESTINAL HAEMORRHAGE [None]
  - BLOOD CREATININE INCREASED [None]
  - CONSTIPATION [None]
  - ASTHENIA [None]
